FAERS Safety Report 8041666-7 (Version None)
Quarter: 2012Q1

REPORT INFORMATION
  Report Type: 
  Country: None (occurrence: None)
  Receive Date: 20120112
  Receipt Date: 20120103
  Transmission Date: 20120608
  Serious: Yes (Other)
  Sender: FDA-Public Use
  Company Number: FR-ELI_LILLY_AND_COMPANY-FR201201000278

PATIENT
  Sex: Female

DRUGS (5)
  1. ACETAMINOPHEN AND CODEINE PHOSPHATE [Concomitant]
     Indication: OESOPHAGEAL DISCOMFORT
     Dosage: UNK
     Dates: start: 20100101
  2. RAMIPRIL [Concomitant]
     Indication: HYPERTENSION
     Dosage: 2.5 MG, QD
     Route: 048
     Dates: start: 20110901, end: 20111107
  3. OXAZEPAM [Concomitant]
     Dosage: UNK
     Dates: start: 20110901
  4. IMOVANE [Concomitant]
     Dosage: UNK
     Dates: start: 20111001
  5. PROZAC [Suspect]
     Indication: DEPRESSION
     Dosage: 20 MG, QD
     Route: 048
     Dates: start: 20111020, end: 20111106

REACTIONS (3)
  - SWOLLEN TONGUE [None]
  - ANGIOEDEMA [None]
  - ANXIETY DISORDER [None]
